FAERS Safety Report 5113716-9 (Version None)
Quarter: 2006Q3

REPORT INFORMATION
  Report Type: 
  Country: None (occurrence: None)
  Receive Date: 20060920
  Receipt Date: 20060907
  Transmission Date: 20061208
  Serious: Yes (Other)
  Sender: FDA-Public Use
  Company Number: 2006109471

PATIENT
  Age: 37 Year
  Sex: Female

DRUGS (4)
  1. ZITHROMAX [Suspect]
     Indication: OBLITERATIVE BRONCHIOLITIS
     Dosage: 250 MG (250 MG)
  2. CLARITHROMYCIN [Suspect]
     Indication: OBLITERATIVE BRONCHIOLITIS
     Dosage: 250 MG (250 MG)
  3. MONTELUKAST (MONTELUKAST) [Suspect]
     Indication: OBLITERATIVE BRONCHIOLITIS
  4. DEXAMETHASONE TAB [Concomitant]

REACTIONS (3)
  - HYPOCALCAEMIA [None]
  - MYALGIA [None]
  - PARAESTHESIA [None]
